FAERS Safety Report 24329781 (Version 2)
Quarter: 2025Q1

REPORT INFORMATION
  Report Type: Spontaneous
  Country: US (occurrence: US)
  Receive Date: 20240917
  Receipt Date: 20250319
  Transmission Date: 20250408
  Serious: No
  Sender: SANOFI AVENTIS
  Company Number: US-SA-2024SA267012

PATIENT
  Age: 25 Year
  Sex: Female

DRUGS (1)
  1. DUPIXENT [Suspect]
     Active Substance: DUPILUMAB
     Indication: Dermatitis atopic
     Dosage: 300 MG, QOW
     Route: 058
     Dates: start: 202408

REACTIONS (7)
  - Asthma [Unknown]
  - Chest pain [Unknown]
  - Dyspnoea [Unknown]
  - Sputum discoloured [Unknown]
  - Condition aggravated [Unknown]
  - Respiratory tract infection [Unknown]
  - Injection site pruritus [Recovered/Resolved]
